FAERS Safety Report 4644700-7 (Version None)
Quarter: 2005Q2

REPORT INFORMATION
  Report Type: 
  Country: None (occurrence: None)
  Receive Date: 20050422
  Receipt Date: 20050408
  Transmission Date: 20051028
  Serious: Yes (Hospitalization)
  Sender: FDA-Public Use
  Company Number: 2005-0008226

PATIENT
  Age: 26 Year
  Sex: Female

DRUGS (7)
  1. VIREAD [Suspect]
     Indication: HIV INFECTION
     Dosage: 1 IN 1 D, ORAL
     Route: 048
     Dates: start: 20050101, end: 20050210
  2. ZERIT [Suspect]
     Indication: HIV INFECTION
     Dosage: 30 MG, 2 IN 1 D, ORAL
     Route: 048
     Dates: end: 20050101
  3. 3TC (LAMIVUDINE) (TABELT) [Suspect]
     Indication: HIV INFECTION
     Dosage: 150 MG, 2 IN 1 D, ORAL
     Route: 048
     Dates: end: 20050210
  4. KALETRA [Concomitant]
  5. ANTRA (OMEPRAZOLE) (CAPSULE) [Concomitant]
  6. FRAXIPARIN (HEPARIN-FRACTION, CALCIUM SALT) [Concomitant]
  7. ZOFRAN [Concomitant]

REACTIONS (2)
  - FALL [None]
  - GUILLAIN-BARRE SYNDROME [None]
